FAERS Safety Report 7817257-7 (Version None)
Quarter: 2011Q4

REPORT INFORMATION
  Report Type: 
  Country: None (occurrence: None)
  Receive Date: 20111017
  Receipt Date: 20111012
  Transmission Date: 20120403
  Serious: Yes (Death, Other)
  Sender: FDA-Public Use
  Company Number: PHHY2011PL90233

PATIENT
  Sex: Female

DRUGS (3)
  1. FLUOROURACIL [Concomitant]
  2. NAVELBINE [Concomitant]
  3. LETROZOLE [Suspect]
     Dates: start: 20080315, end: 20080615

REACTIONS (3)
  - NEOPLASM PROGRESSION [None]
  - DEATH [None]
  - NEOPLASM MALIGNANT [None]
